FAERS Safety Report 21659357 (Version 1)
Quarter: 2022Q4

REPORT INFORMATION
  Report Type: Spontaneous
  Country: JP (occurrence: JP)
  Receive Date: 20221129
  Receipt Date: 20221129
  Transmission Date: 20230113
  Serious: Yes (Hospitalization, Other)
  Sender: FDA-Public Use
  Company Number: JP-MSD-2211JPN002990J

PATIENT
  Age: 73 Year
  Sex: Male

DRUGS (4)
  1. KEYTRUDA [Suspect]
     Active Substance: PEMBROLIZUMAB
     Indication: Bladder cancer
     Dosage: 2 COURSES
     Route: 065
  2. KEYTRUDA [Suspect]
     Active Substance: PEMBROLIZUMAB
     Dosage: UNK
     Route: 065
  3. PACLITAXEL [Suspect]
     Active Substance: PACLITAXEL
     Indication: Bladder cancer
     Dosage: 4 COURSES
     Route: 065
  4. CARBOPLATIN [Suspect]
     Active Substance: CARBOPLATIN
     Indication: Bladder cancer
     Dosage: 4 COURSES
     Route: 065

REACTIONS (7)
  - Nephrotic syndrome [Unknown]
  - Immune-mediated renal disorder [Recovered/Resolved]
  - Lung disorder [Recovering/Resolving]
  - Erythema [Recovering/Resolving]
  - Decreased appetite [Recovered/Resolved]
  - Eosinophil count increased [Unknown]
  - Pruritus [Recovering/Resolving]
